FAERS Safety Report 18205891 (Version 1)
Quarter: 2020Q3

REPORT INFORMATION
  Report Type: Report from Study
  Country: MX (occurrence: MX)
  Receive Date: 20200827
  Receipt Date: 20200827
  Transmission Date: 20201103
  Serious: Yes (Death)
  Sender: FDA-Public Use
  Company Number: MX-SEATTLE GENETICS-2020SGN03811

PATIENT
  Age: 57 Year
  Sex: Female

DRUGS (1)
  1. BRENTUXIMAB VEDOTIN?MPI [Suspect]
     Active Substance: BRENTUXIMAB VEDOTIN
     Indication: HODGKIN^S DISEASE
     Dosage: 88 MG
     Route: 042
     Dates: start: 20200808

REACTIONS (1)
  - Death [Fatal]

NARRATIVE: CASE EVENT DATE: 20200818
